FAERS Safety Report 7479715-7 (Version None)
Quarter: 2011Q2

REPORT INFORMATION
  Report Type: 
  Country: None (occurrence: None)
  Receive Date: 20110513
  Receipt Date: 20110511
  Transmission Date: 20111010
  Serious: Yes (Death, Hospitalization, Other)
  Sender: FDA-Public Use
  Company Number: DE-ABBOTT-11P-062-0715493-00

PATIENT
  Sex: Female
  Weight: 43 kg

DRUGS (4)
  1. PREDNISOLONE [Concomitant]
     Indication: PRODUCT USED FOR UNKNOWN INDICATION
  2. HUMIRA [Suspect]
     Dates: end: 20110127
  3. HUMIRA [Suspect]
     Indication: RHEUMATOID ARTHRITIS
     Route: 058
     Dates: start: 20101118, end: 20110113
  4. SULFASALAZINE [Concomitant]
     Indication: RHEUMATOID ARTHRITIS
     Route: 048
     Dates: start: 20101202, end: 20110225

REACTIONS (8)
  - GENERAL PHYSICAL HEALTH DETERIORATION [None]
  - DEATH [None]
  - SEPSIS [None]
  - OEDEMA PERIPHERAL [None]
  - DECUBITUS ULCER [None]
  - PROTEIN TOTAL DECREASED [None]
  - CARDIAC FAILURE [None]
  - PNEUMONIA [None]
